FAERS Safety Report 9527694 (Version 1)
Quarter: 2013Q3

REPORT INFORMATION
  Report Type: Spontaneous
  Country: US (occurrence: None)
  Receive Date: 20130913
  Receipt Date: 20130913
  Transmission Date: 20140515
  Serious: Yes (Life-Threatening, Hospitalization, Disabling)
  Sender: FDA-Public Use
  Company Number: None

PATIENT
  Age: 63 Year
  Sex: Male
  Weight: 81.65 kg

DRUGS (2)
  1. ACIPHEX (RABEPRAZOLE SODIUM) [Suspect]
     Indication: GASTROOESOPHAGEAL REFLUX DISEASE
     Dosage: 2 ONE DAILY TAKEN BY MOUTH
     Route: 048
     Dates: start: 20070715, end: 20130301
  2. MULTI VITAMIN [Concomitant]

REACTIONS (1)
  - Bladder cancer [None]
